FAERS Safety Report 23764893 (Version 2)
Quarter: 2024Q2

REPORT INFORMATION
  Report Type: Report from Study
  Country: US (occurrence: US)
  Receive Date: 20240420
  Receipt Date: 20240518
  Transmission Date: 20240716
  Serious: Yes (Other)
  Sender: FDA-Public Use
  Company Number: US-ABBVIE-5724567

PATIENT
  Age: 63 Year
  Sex: Male

DRUGS (1)
  1. RINVOQ [Suspect]
     Active Substance: UPADACITINIB
     Indication: Dermatitis atopic
     Route: 048
     Dates: start: 20230717

REACTIONS (3)
  - Multiple sclerosis relapse [Recovering/Resolving]
  - Infection [Recovering/Resolving]
  - Immune system disorder [Recovering/Resolving]

NARRATIVE: CASE EVENT DATE: 20240416
